FAERS Safety Report 5697954-2 (Version None)
Quarter: 2008Q2

REPORT INFORMATION
  Report Type: 
  Country: None (occurrence: None)
  Receive Date: 20080408
  Receipt Date: 20080102
  Transmission Date: 20081010
  Serious: Yes (Other)
  Sender: FDA-Public Use
  Company Number: US-JNJFOC-20070905720

PATIENT
  Sex: Female
  Weight: 61.24 kg

DRUGS (1)
  1. ORTHO EVRA [Suspect]
     Indication: CONTRACEPTION
     Route: 062
     Dates: start: 20040901, end: 20050201

REACTIONS (6)
  - ABORTION THREATENED [None]
  - DRUG EXPOSURE DURING PREGNANCY [None]
  - PREGNANCY WITH CONTRACEPTIVE PATCH [None]
  - PREMATURE LABOUR [None]
  - THROMBOSIS [None]
  - UTERINE HAEMATOMA [None]
